FAERS Safety Report 16212864 (Version 2)
Quarter: 2019Q2

REPORT INFORMATION
  Report Type: Report from Study
  Country: JP (occurrence: JP)
  Receive Date: 20190418
  Receipt Date: 20190426
  Transmission Date: 20190711
  Serious: Yes (Death)
  Sender: FDA-Public Use
  Company Number: JP-EISAI MEDICAL RESEARCH-EC-2019-055126

PATIENT
  Age: 63 Year
  Sex: Female
  Weight: 40 kg

DRUGS (2)
  1. LENVIMA [Suspect]
     Active Substance: LENVATINIB
     Indication: HEPATOCELLULAR CARCINOMA
     Route: 048
     Dates: start: 20181207, end: 20181218
  2. LAGNOS [Concomitant]

REACTIONS (2)
  - Malignant neoplasm progression [Fatal]
  - Tumour rupture [Fatal]

NARRATIVE: CASE EVENT DATE: 20190104
